FAERS Safety Report 12527234 (Version 1)
Quarter: 2016Q3

REPORT INFORMATION
  Report Type: Spontaneous
  Country: US (occurrence: US)
  Receive Date: 20160705
  Receipt Date: 20160705
  Transmission Date: 20161109
  Serious: Yes (Hospitalization, Other)
  Sender: FDA-Public Use
  Company Number: US-ELI_LILLY_AND_COMPANY-US201606009865

PATIENT
  Sex: Male

DRUGS (3)
  1. CIALIS [Suspect]
     Active Substance: TADALAFIL
     Indication: ERECTILE DYSFUNCTION
     Dosage: 10 MG, UNKNOWN
     Route: 065
     Dates: start: 2013
  2. CIALIS [Suspect]
     Active Substance: TADALAFIL
     Dosage: 20 MG, UNKNOWN
     Route: 065
     Dates: start: 201605
  3. METHADONE [Suspect]
     Active Substance: METHADONE HYDROCHLORIDE
     Indication: PAIN
     Dosage: UNK, UNKNOWN
     Route: 065

REACTIONS (7)
  - Cervical vertebral fracture [Unknown]
  - Cerebrovascular accident [Unknown]
  - Accident [Unknown]
  - Myocardial infarction [Unknown]
  - Abdominal hernia [Unknown]
  - Obstruction gastric [Unknown]
  - Hemiparesis [Unknown]

NARRATIVE: CASE EVENT DATE: 2013
